FAERS Safety Report 6509965-5 (Version None)
Quarter: 2009Q4

REPORT INFORMATION
  Report Type: 
  Country: None (occurrence: None)
  Receive Date: 20091222
  Receipt Date: 20091216
  Transmission Date: 20100525
  Serious: Yes (Other)
  Sender: FDA-Public Use
  Company Number: PHHY2009IT56676

PATIENT
  Sex: Male

DRUGS (3)
  1. SEBIVO [Suspect]
     Indication: HEPATITIS B
     Dosage: 600 MG, DAILY
     Route: 048
     Dates: start: 20091103, end: 20091110
  2. INSULIN [Concomitant]
     Dosage: 50 UI
     Route: 058
     Dates: start: 20041101, end: 20091104
  3. METFORMIN HCL [Concomitant]
     Dosage: 1000 MG, UNK
     Route: 048
     Dates: start: 20091001, end: 20091104

REACTIONS (1)
  - SOMNOLENCE [None]
